FAERS Safety Report 7789516-8 (Version None)
Quarter: 2011Q3

REPORT INFORMATION
  Report Type: 
  Country: None (occurrence: None)
  Receive Date: 20110930
  Receipt Date: 20110321
  Transmission Date: 20111222
  Serious: No
  Sender: FDA-Public Use
  Company Number: US-ASTRAZENECA-2008UW24892

PATIENT
  Sex: Female

DRUGS (2)
  1. ARIMIDEX [Suspect]
     Route: 048
     Dates: start: 20081029
  2. TAMOXIFEN CITRATE [Suspect]
     Route: 048

REACTIONS (12)
  - STRESS [None]
  - LOWER LIMB FRACTURE [None]
  - OEDEMA PERIPHERAL [None]
  - COLONOSCOPY [None]
  - ENDOSCOPY [None]
  - CHEST PAIN [None]
  - BACK PAIN [None]
  - ABDOMINAL DISCOMFORT [None]
  - GALLBLADDER DISORDER [None]
  - ANXIETY [None]
  - BONE DECALCIFICATION [None]
  - GASTRIC DISORDER [None]
